FAERS Safety Report 5153299-0 (Version None)
Quarter: 2006Q4

REPORT INFORMATION
  Report Type: 
  Country: None (occurrence: None)
  Receive Date: 20061117
  Receipt Date: 20061109
  Transmission Date: 20070319
  Serious: Yes (Other)
  Sender: FDA-Public Use
  Company Number: US-ROCHE-470896

PATIENT
  Age: 81 Year
  Sex: Female
  Weight: 55.3 kg

DRUGS (4)
  1. BONIVA [Suspect]
     Indication: OSTEOPOROSIS
     Route: 048
     Dates: start: 20050615
  2. VASERETIC [Concomitant]
     Indication: HYPERTENSION
     Dosage: TAKEN DAILY
     Route: 048
  3. MEVACOR [Concomitant]
     Dosage: TAKEN DAILY
     Route: 048
  4. SYNTHROID [Concomitant]
     Indication: THYROIDECTOMY
     Dosage: TAKEN DAILY
     Route: 048

REACTIONS (2)
  - EYELID PTOSIS [None]
  - VISUAL DISTURBANCE [None]
